FAERS Safety Report 6078686-8 (Version None)
Quarter: 2009Q1

REPORT INFORMATION
  Report Type: 
  Country: None (occurrence: None)
  Receive Date: 20090216
  Receipt Date: 20090211
  Transmission Date: 20090719
  Serious: Yes (Hospitalization, Other)
  Sender: FDA-Public Use
  Company Number: GB-WYE-G03098809

PATIENT
  Age: 29 Year
  Sex: Female

DRUGS (5)
  1. IBUPROFEN [Suspect]
     Indication: PLANTAR FASCIITIS
     Dosage: ONCE DAILY
     Route: 061
     Dates: start: 20080512
  2. SPORANOX [Suspect]
     Indication: VULVOVAGINAL CANDIDIASIS
     Route: 048
     Dates: start: 20080131, end: 20080201
  3. SPORANOX [Suspect]
     Route: 048
     Dates: start: 20080214, end: 20080215
  4. DOXYCYCLINE HYCLATE [Suspect]
     Indication: PELVIC INFLAMMATORY DISEASE
     Route: 048
  5. CLOTRIMAZOLE [Suspect]
     Indication: VULVOVAGINAL CANDIDIASIS
     Dosage: 200 MG EVERY 1 TOT
     Route: 067

REACTIONS (5)
  - CONDITION AGGRAVATED [None]
  - DRUG EXPOSURE DURING PREGNANCY [None]
  - PELVIC PAIN [None]
  - PLANTAR FASCIITIS [None]
  - VULVOVAGINAL CANDIDIASIS [None]
